FAERS Safety Report 13961574 (Version 1)
Quarter: 2017Q3

REPORT INFORMATION
  Report Type: Report from Study
  Country: US (occurrence: US)
  Receive Date: 20170912
  Receipt Date: 20170912
  Transmission Date: 20171128
  Serious: Yes (Hospitalization, Other)
  Sender: FDA-Public Use
  Company Number: US-GILEAD-2017-0292551

PATIENT
  Age: 15 Year
  Sex: Male

DRUGS (1)
  1. AZTREONAM LYSINE [Suspect]
     Active Substance: AZTREONAM LYSINE
     Indication: LUNG DISORDER
     Dosage: 75 MG, UNK
     Route: 055
     Dates: start: 20161109

REACTIONS (3)
  - Off label use [Not Recovered/Not Resolved]
  - Pneumonia [Unknown]
  - Superinfection viral [Unknown]
